FAERS Safety Report 7693574-9 (Version None)
Quarter: 2011Q3

REPORT INFORMATION
  Report Type: 
  Country: None (occurrence: None)
  Receive Date: 20110819
  Receipt Date: 20110816
  Transmission Date: 20111222
  Serious: Yes (Death, Other)
  Sender: FDA-Public Use
  Company Number: PHHY2011TW73583

PATIENT
  Age: 72 Year
  Sex: Male

DRUGS (2)
  1. RITUXIMAB [Suspect]
     Indication: HAEMATOLOGICAL MALIGNANCY
     Dosage: UNK
  2. PREDNISOLONE [Suspect]
     Indication: HAEMATOLOGICAL MALIGNANCY
     Dosage: UNK

REACTIONS (2)
  - CYTOMEGALOVIRUS INFECTION [None]
  - DEATH [None]
